FAERS Safety Report 5691641-2 (Version None)
Quarter: 2008Q2

REPORT INFORMATION
  Report Type: 
  Country: None (occurrence: None)
  Receive Date: 20080402
  Receipt Date: 20051024
  Transmission Date: 20081010
  Serious: Yes (Death, Hospitalization, Other)
  Sender: FDA-Public Use
  Company Number: US-ROCHE-422304

PATIENT
  Age: 57 Year
  Sex: Female
  Weight: 83.9 kg

DRUGS (9)
  1. CAPECITABINE [Suspect]
     Indication: BREAST CANCER
     Route: 048
     Dates: end: 20050913
  2. HERCEPTIN [Concomitant]
     Route: 065
  3. CORTISOL [Concomitant]
     Indication: DRUG USE FOR UNKNOWN INDICATION
     Route: 065
  4. GEMZAR [Concomitant]
     Route: 065
  5. NEUPOGEN [Concomitant]
     Indication: NEUTROPENIA
     Route: 065
  6. DEXTROSE 5% [Concomitant]
     Indication: DRUG USE FOR UNKNOWN INDICATION
     Route: 065
  7. ADVAIR HFA [Concomitant]
  8. ALBUTEROL [Concomitant]
  9. ATROVENT [Concomitant]

REACTIONS (27)
  - ACIDOSIS [None]
  - BLOOD FIBRINOGEN DECREASED [None]
  - BLOOD PRESSURE DECREASED [None]
  - BODY TEMPERATURE DECREASED [None]
  - CHEST DISCOMFORT [None]
  - COAGULOPATHY [None]
  - DISEASE PROGRESSION [None]
  - DISSEMINATED INTRAVASCULAR COAGULATION [None]
  - DYSPNOEA [None]
  - ELECTROLYTE IMBALANCE [None]
  - HAEMOGLOBIN DECREASED [None]
  - HAEMORRHAGIC ANAEMIA [None]
  - HAEMOTHORAX [None]
  - HYPERGLYCAEMIA [None]
  - HYPOVOLAEMIC SHOCK [None]
  - LEUKOCYTOSIS [None]
  - LEUKOPENIA [None]
  - MALIGNANT PLEURAL EFFUSION [None]
  - MUSCULOSKELETAL PAIN [None]
  - NEOPLASM MALIGNANT [None]
  - NEUTROPENIA [None]
  - OXYGEN SATURATION DECREASED [None]
  - PNEUMONIA [None]
  - PULMONARY MASS [None]
  - PYREXIA [None]
  - STRESS [None]
  - THROMBOCYTOPENIA [None]
